FAERS Safety Report 9715139 (Version 2)
Quarter: 2013Q4

REPORT INFORMATION
  Report Type: Spontaneous
  Country: AT (occurrence: AT)
  Receive Date: 20131126
  Receipt Date: 20131126
  Transmission Date: 20140711
  Serious: Yes (Hospitalization)
  Sender: FDA-Public Use
  Company Number: AT-ACORDA-ACO_38720_2013

PATIENT
  Sex: Female

DRUGS (11)
  1. FAMPYRA [Suspect]
     Indication: MULTIPLE SCLEROSIS
     Dosage: 10 MG, BID
     Route: 048
     Dates: start: 20130620, end: 20130715
  2. FAMPYRA [Suspect]
     Indication: GAIT DISTURBANCE
  3. FAMPYRA [Suspect]
     Indication: GAIT DISTURBANCE
  4. TYSABRI [Concomitant]
     Indication: PRODUCT USED FOR UNKNOWN INDICATION
     Dosage: UNK
  5. LOVENOX [Concomitant]
     Indication: PRODUCT USED FOR UNKNOWN INDICATION
     Dosage: UNK
  6. NEURONTIN [Concomitant]
     Indication: NEURALGIA
     Dosage: UNK
  7. SIRDALUD [Concomitant]
     Indication: PRODUCT USED FOR UNKNOWN INDICATION
     Dosage: UNK
  8. MAGNOSOLV [Concomitant]
     Indication: PRODUCT USED FOR UNKNOWN INDICATION
  9. NATRIUM CHLORIDE [Concomitant]
     Indication: PRODUCT USED FOR UNKNOWN INDICATION
     Dosage: UNK
  10. FERRO-GRADUMET [Concomitant]
     Indication: PRODUCT USED FOR UNKNOWN INDICATION
     Dosage: UNK
  11. PANTOLOC [Concomitant]
     Indication: PRODUCT USED FOR UNKNOWN INDICATION
     Dosage: UNK

REACTIONS (2)
  - Status epilepticus [Recovered/Resolved]
  - Grand mal convulsion [Recovered/Resolved]
